FAERS Safety Report 9936946 (Version 1)
Quarter: 2014Q1

REPORT INFORMATION
  Report Type: Spontaneous
  Country: US (occurrence: None)
  Receive Date: 20140115
  Receipt Date: 20140115
  Transmission Date: 20141002
  Serious: No
  Sender: FDA-Public Use
  Company Number: 2013US002725

PATIENT
  Sex: Male

DRUGS (6)
  1. ICLUSIG (PONATINIB) TABLET, 45MG [Suspect]
     Route: 048
     Dates: start: 20130904, end: 20130910
  2. GLUCOPHAGE (METFORMIN HYDROCHLORIDE) [Concomitant]
  3. JANUVIA (SITAGLIPTIN PHOSPHATE) [Concomitant]
  4. ACTOS (PIOGLITAZONE HYDROCHLORIDE) [Concomitant]
  5. PRAVASTATIN (PRAVASTATIN) [Concomitant]
  6. LISINOPRIL (LISINOPRIL) [Concomitant]

REACTIONS (7)
  - Nerve injury [None]
  - Musculoskeletal disorder [None]
  - Motor dysfunction [None]
  - Sleep disorder [None]
  - Musculoskeletal pain [None]
  - Hypoaesthesia [None]
  - Abdominal discomfort [None]
